FAERS Safety Report 6209223-2 (Version None)
Quarter: 2009Q2

REPORT INFORMATION
  Report Type: 
  Country: None (occurrence: None)
  Receive Date: 20090529
  Receipt Date: 20090528
  Transmission Date: 20091009
  Serious: Yes (Hospitalization)
  Sender: FDA-Public Use
  Company Number: IT-EISAI INC.-E2080-00163-SPO-IT

PATIENT
  Sex: Female

DRUGS (3)
  1. INOVELON [Suspect]
     Indication: DRUG USE FOR UNKNOWN INDICATION
     Dosage: UNKNOWN
     Dates: start: 20090224, end: 20090420
  2. OSPOLOT [Concomitant]
  3. FRISIUM [Concomitant]

REACTIONS (1)
  - BRONCHOPNEUMONIA [None]
